FAERS Safety Report 15861166 (Version 1)
Quarter: 2019Q1

REPORT INFORMATION
  Report Type: Other
  Country: AU (occurrence: AU)
  Receive Date: 20190124
  Receipt Date: 20190124
  Transmission Date: 20190417
  Serious: Yes (Life-Threatening, Hospitalization)
  Sender: FDA-Public Use
  Company Number: AU-ATLAS PHARMACEUTICALS, LLC-2061681

PATIENT
  Age: 55 Year
  Sex: Female
  Weight: 80 kg

DRUGS (7)
  1. INDAPAMIDE. [Suspect]
     Active Substance: INDAPAMIDE
     Route: 065
  2. PERINDOPRIL [Suspect]
     Active Substance: PERINDOPRIL
     Route: 065
  3. SERTRALINE [Suspect]
     Active Substance: SERTRALINE HYDROCHLORIDE
     Route: 065
  4. METFORMIN [Suspect]
     Active Substance: METFORMIN HYDROCHLORIDE
     Indication: PRODUCT USED FOR UNKNOWN INDICATION
     Route: 065
  5. IBUPROFEN. [Suspect]
     Active Substance: IBUPROFEN
     Route: 065
  6. LINAGLIPTIN [Suspect]
     Active Substance: LINAGLIPTIN
     Route: 065
  7. ROSUVASTATIN. [Suspect]
     Active Substance: ROSUVASTATIN
     Route: 065

REACTIONS (4)
  - Intentional overdose [Recovered/Resolved]
  - Renal failure [Recovered/Resolved]
  - Metabolic acidosis [Recovered/Resolved]
  - Shock [Recovered/Resolved]
